FAERS Safety Report 5080646-0 (Version None)
Quarter: 2006Q3

REPORT INFORMATION
  Report Type: 
  Country: None (occurrence: None)
  Receive Date: 20060809
  Receipt Date: 20060724
  Transmission Date: 20061208
  Serious: Yes (Life-Threatening, Hospitalization, Other)
  Sender: FDA-Public Use
  Company Number: 2006AL001994

PATIENT
  Age: 69 Year
  Sex: Female

DRUGS (8)
  1. DICLOFENAC SODIUM [Suspect]
     Dosage: PO
     Route: 048
     Dates: end: 20060306
  2. SALICYLIC ACID [Concomitant]
  3. CLOPIDOGREL [Concomitant]
  4. ENOXAPARIN SODIUM [Concomitant]
  5. ATENOLOL [Concomitant]
  6. SIMVASTATIN [Concomitant]
  7. CO-DYDRAMOL [Concomitant]
  8. CO-AMOXICLAV [Concomitant]

REACTIONS (3)
  - ACUTE CORONARY SYNDROME [None]
  - CONFUSIONAL STATE [None]
  - DUODENAL ULCER PERFORATION [None]
